FAERS Safety Report 5416792-9 (Version None)
Quarter: 2007Q3

REPORT INFORMATION
  Report Type: 
  Country: None (occurrence: None)
  Receive Date: 20070815
  Receipt Date: 20070815
  Transmission Date: 20080115
  Serious: Yes (Other)
  Sender: FDA-Public Use
  Company Number: None

PATIENT
  Sex: Male
  Weight: 3.5 kg

DRUGS (2)
  1. MORPHINE [Suspect]
     Dosage: 0.3 MG Q4H PO
     Route: 048
     Dates: start: 20070718, end: 20070719
  2. LORAZEPAM [Concomitant]

REACTIONS (1)
  - OXYGEN SATURATION DECREASED [None]
